FAERS Safety Report 18673275 (Version 1)
Quarter: 2020Q4

REPORT INFORMATION
  Report Type: Spontaneous
  Country: US (occurrence: US)
  Receive Date: 20201228
  Receipt Date: 20201228
  Transmission Date: 20210114
  Serious: No
  Sender: FDA-Public Use
  Company Number: US-GILEAD-2020-0510170

PATIENT
  Sex: Male

DRUGS (9)
  1. CARISOPRODOL. [Concomitant]
     Active Substance: CARISOPRODOL
  2. GABAPENTIN. [Concomitant]
     Active Substance: GABAPENTIN
  3. EMGALITY [Concomitant]
     Active Substance: GALCANEZUMAB-GNLM
  4. SUPREP BOWEL PREP [Concomitant]
     Active Substance: MAGNESIUM SULFATE\POTASSIUM SULFATE\SODIUM SULFATE
  5. ALPRAZOLAM. [Concomitant]
     Active Substance: ALPRAZOLAM
  6. METHADONE [Concomitant]
     Active Substance: METHADONE HYDROCHLORIDE
  7. EPCLUSA [Suspect]
     Active Substance: SOFOSBUVIR\VELPATASVIR
     Indication: CHRONIC HEPATITIS C
     Dosage: 1 DOSAGE FORM, QD
     Route: 048
     Dates: start: 20201204
  8. OXYCODONE HYDROCHLORIDE. [Concomitant]
     Active Substance: OXYCODONE HYDROCHLORIDE
  9. BISACODYL. [Concomitant]
     Active Substance: BISACODYL

REACTIONS (3)
  - Pyrexia [Not Recovered/Not Resolved]
  - Headache [Not Recovered/Not Resolved]
  - Lymphadenopathy [Not Recovered/Not Resolved]
